FAERS Safety Report 19796998 (Version 2)
Quarter: 2021Q3

REPORT INFORMATION
  Report Type: Spontaneous
  Country: US (occurrence: US)
  Receive Date: 20210907
  Receipt Date: 20210915
  Transmission Date: 20211014
  Serious: No
  Sender: FDA-Public Use
  Company Number: US-AIMMUNE THERAPEUTICS, INC.-2021AIMT00520

PATIENT

DRUGS (5)
  1. PALFORZIA [Suspect]
     Active Substance: PEANUT
     Indication: FOOD ALLERGY
     Dosage: 80 MG, 1X/DAY
     Route: 048
     Dates: start: 20210817, end: 20210820
  2. PALFORZIA [Suspect]
     Active Substance: PEANUT
     Dosage: 20 MG, 1X/DAY, SECOND DOSE DECREASE
     Route: 048
     Dates: start: 20210831
  3. PALFORZIA [Suspect]
     Active Substance: PEANUT
     Dosage: 80 MG, 1X/DAY, LAST DOSE PRIOR TO LUMP IN THE THROAT
     Route: 048
     Dates: start: 202108, end: 202108
  4. PALFORZIA [Suspect]
     Active Substance: PEANUT
     Dosage: 40 MG, 1X/DAY, FIRST DOSE DECREASE
     Route: 048
     Dates: start: 20210821, end: 20210830
  5. PALFORZIA [Suspect]
     Active Substance: PEANUT
     Dosage: 40 MG, 1X/DAY, LAST DOSE PRIOR RECCURENCE
     Route: 048
     Dates: start: 20210825, end: 20210825

REACTIONS (4)
  - Eosinophilic oesophagitis [Unknown]
  - Dyspepsia [Unknown]
  - Sensation of foreign body [Recovered/Resolved]
  - Gastrooesophageal reflux disease [Unknown]

NARRATIVE: CASE EVENT DATE: 202108
